FAERS Safety Report 5085609-7 (Version None)
Quarter: 2006Q3

REPORT INFORMATION
  Report Type: 
  Country: None (occurrence: None)
  Receive Date: 20060822
  Receipt Date: 20060816
  Transmission Date: 20061208
  Serious: Yes (Hospitalization)
  Sender: FDA-Public Use
  Company Number: JP-GLAXOSMITHKLINE-B0434857A

PATIENT
  Age: 49 Year
  Sex: Male

DRUGS (6)
  1. EPIVIR [Suspect]
     Indication: HIV INFECTION
     Route: 048
     Dates: start: 20010515
  2. RETROVIR [Suspect]
     Indication: HIV INFECTION
     Route: 048
     Dates: start: 20010515
  3. ZIAGEN [Suspect]
     Indication: HIV INFECTION
     Dosage: 600MG PER DAY
     Route: 048
     Dates: start: 20011017
  4. STOCRIN [Concomitant]
     Indication: ACQUIRED IMMUNODEFICIENCY SYNDROME
     Route: 048
     Dates: start: 20011017
  5. INVIRASE [Concomitant]
     Indication: ACQUIRED IMMUNODEFICIENCY SYNDROME
     Route: 048
     Dates: start: 20010524, end: 20010919
  6. NORVIR [Concomitant]
     Indication: ACQUIRED IMMUNODEFICIENCY SYNDROME
     Route: 048
     Dates: start: 20010515

REACTIONS (11)
  - ACUTE RESPIRATORY FAILURE [None]
  - ANAEMIA [None]
  - C-REACTIVE PROTEIN DECREASED [None]
  - CARDIAC FAILURE CONGESTIVE [None]
  - DECREASED APPETITE [None]
  - DYSPNOEA [None]
  - HYPERTENSION [None]
  - NASOPHARYNGITIS [None]
  - NAUSEA [None]
  - PNEUMONIA [None]
  - VENTRICULAR HYPERTROPHY [None]
